FAERS Safety Report 7772686-5 (Version None)
Quarter: 2011Q3

REPORT INFORMATION
  Report Type: 
  Country: None (occurrence: None)
  Receive Date: 20110922
  Receipt Date: 20100412
  Transmission Date: 20111222
  Serious: Yes (Other)
  Sender: FDA-Public Use
  Company Number: US-ASTRAZENECA-2009UW20532

PATIENT
  Age: 16293 Day
  Sex: Female

DRUGS (2)
  1. SEROQUEL [Suspect]
     Dosage: 200 TO 400 MG
     Route: 048
     Dates: start: 20060119, end: 20090608
  2. LOVASTATIN [Concomitant]
     Dates: start: 20070430

REACTIONS (5)
  - PANCREATITIS [None]
  - DIABETES MELLITUS [None]
  - HYPERGLYCAEMIA [None]
  - KETOACIDOSIS [None]
  - GLUCOSE TOLERANCE IMPAIRED [None]
